FAERS Safety Report 9295745 (Version 1)
Quarter: 2013Q2

REPORT INFORMATION
  Report Type: Spontaneous
  Country: US (occurrence: US)
  Receive Date: 20130517
  Receipt Date: 20130517
  Transmission Date: 20140414
  Serious: Yes (Hospitalization)
  Sender: FDA-Public Use
  Company Number: US-BAYER-2013-060186

PATIENT
  Age: 39 Year
  Sex: Female
  Weight: 68.93 kg

DRUGS (6)
  1. YAZ [Suspect]
  2. VALTREX [Concomitant]
     Dosage: 1 GM [PER PR]
  3. AZITHROMYCIN [Concomitant]
     Dosage: 250 MG, UNK
  4. MVI [Concomitant]
  5. MOTRIN [Concomitant]
     Dosage: 800 MG, TID
  6. TYLENOL WITH CODEINE [Concomitant]

REACTIONS (1)
  - Deep vein thrombosis [None]
